FAERS Safety Report 7878589-X (Version None)
Quarter: 2011Q4

REPORT INFORMATION
  Report Type: 
  Country: None (occurrence: None)
  Receive Date: 20111101
  Receipt Date: 20111101
  Transmission Date: 20120403
  Serious: Yes (Hospitalization)
  Sender: FDA-Public Use
  Company Number: None

PATIENT
  Age: 36 Year
  Sex: Male
  Weight: 84.5 kg

DRUGS (20)
  1. CIDOFOVIR [Suspect]
     Indication: CYTOMEGALOVIRUS INFECTION
     Dosage: 375 MG
     Route: 042
     Dates: start: 20110914, end: 20110914
  2. SEPTRA [Concomitant]
  3. ONDANSETRON [Concomitant]
  4. CLOPIDOGREL [Concomitant]
  5. ESOMEPRAZOLE SODIUM [Concomitant]
  6. FLUOXETINE HCL [Concomitant]
  7. DOCUSATE-SENNA [Concomitant]
  8. HEPARIN [Concomitant]
  9. NYSTATIN [Concomitant]
  10. PRAVASTATIN [Concomitant]
  11. PREDNISONE [Concomitant]
  12. ZOLPIDEM [Concomitant]
  13. LORTAB [Concomitant]
  14. PROMETHAZINE [Concomitant]
  15. SIROLIMUS [Concomitant]
  16. FLUCONAZOLE [Concomitant]
  17. SEVELAMER [Concomitant]
  18. DARBEPOETIN ALFA [Concomitant]
  19. METOCLOPRAMIDE [Concomitant]
  20. VANCOMYCIN [Concomitant]

REACTIONS (2)
  - DIALYSIS [None]
  - IRIDOCYCLITIS [None]
